FAERS Safety Report 4450275-8 (Version None)
Quarter: 2004Q3

REPORT INFORMATION
  Report Type: 
  Country: None (occurrence: None)
  Receive Date: 20040914
  Receipt Date: 20040831
  Transmission Date: 20050211
  Serious: Yes (Hospitalization)
  Sender: FDA-Public Use
  Company Number: 2004061635

PATIENT
  Age: 31 Year
  Sex: Female

DRUGS (2)
  1. ZELDOX [Suspect]
     Indication: ILL-DEFINED DISORDER
     Dosage: 120 MG, ORAL
     Route: 048
  2. ALL OTHER THERAPEUTIC PRODUCTS (ALL OTHER THERAPEUTIC PRODUCTS) [Concomitant]

REACTIONS (1)
  - OEDEMA [None]
